FAERS Safety Report 10016174 (Version 4)
Quarter: 2014Q2

REPORT INFORMATION
  Report Type: Spontaneous
  Country: US (occurrence: US)
  Receive Date: 20140317
  Receipt Date: 20140502
  Transmission Date: 20141212
  Serious: Yes (Death)
  Sender: FDA-Public Use
  Company Number: US-ACTELION-A-US2014-95923

PATIENT
  Age: 57 Year
  Sex: Female
  Weight: 79.37 kg

DRUGS (28)
  1. VENTAVIS [Suspect]
     Indication: PULMONARY ARTERIAL HYPERTENSION
     Dosage: 5 MCG, 6 X DAILY
     Route: 055
     Dates: start: 200602
  2. VENTAVIS [Suspect]
     Dosage: UNK
     Route: 055
     Dates: start: 20120322, end: 20130311
  3. ADCIRCA [Concomitant]
     Dosage: UNK
  4. ADCIRCA [Concomitant]
     Dosage: UNK
  5. COUMADIN [Concomitant]
     Dosage: 5 MG TAD
     Route: 048
  6. PRILOSEC [Concomitant]
     Dosage: 40 MG, UNK
     Route: 048
  7. MULTIVITAMIN [Concomitant]
     Route: 048
  8. SUCRALFATE [Concomitant]
     Dosage: 1 UNK, UNK
  9. PROZAC [Concomitant]
     Dosage: 20 MG, UNK
     Route: 048
  10. DICYCLOMINE [Concomitant]
     Dosage: 20 MG, UNK
  11. SYNTHROID [Concomitant]
     Dosage: 50 UNK, UNK
     Route: 048
  12. DILANTIN [Concomitant]
     Dosage: 100 MG, 6 CAPS AT NIGHT
     Route: 048
  13. LANOXIN [Concomitant]
     Dosage: 125 UNK, UNK
     Route: 048
  14. ALDACTONE [Concomitant]
     Dosage: 25 MG, EVERY 4 DAYS
     Route: 048
  15. KLOR-CON [Concomitant]
     Dosage: 30 MEQ, UNK
     Route: 048
  16. DUONEB [Concomitant]
     Dosage: 1 PO Q6H PRN
  17. MAGNESIUM OXIDE [Concomitant]
     Dosage: 40 MG, UNK
     Route: 048
  18. BUMEX [Concomitant]
     Dosage: 2 MG, BID
  19. ACETAMINOPHEN [Concomitant]
     Dosage: 650 MG, Q4HRS PRN
     Route: 048
  20. NITROSTAT [Concomitant]
     Dosage: 0.4 MG, PRN
     Route: 060
  21. OXYGEN [Concomitant]
     Dosage: 3 LPM
  22. TESSALON [Concomitant]
     Dosage: 200 MG, BID
     Route: 048
  23. METOPROLOL TARTRATE [Concomitant]
     Dosage: 75 MG, BID
     Route: 048
  24. METOLAZONE [Concomitant]
     Dosage: I PO TWICE A WEEK
     Route: 048
  25. GLUCOPHAGE [Concomitant]
     Dosage: 500 MG, UNK
     Route: 048
  26. LETAIRIS [Concomitant]
     Dosage: 10 MG, UNK
     Route: 048
  27. LETAIRIS [Concomitant]
     Dosage: UNK
  28. FORADIL [Concomitant]
     Dosage: 1 CAPSULE INHALE TWICE A DAY

REACTIONS (15)
  - Death [Fatal]
  - Transplant evaluation [Unknown]
  - Nasopharyngitis [Unknown]
  - Toothache [Unknown]
  - Arthritis [Unknown]
  - Hypoxia [Unknown]
  - Oropharyngeal pain [Unknown]
  - Hepatomegaly [Unknown]
  - Influenza [Unknown]
  - Dyspnoea [Unknown]
  - Dyspnoea exertional [Unknown]
  - Wheezing [Unknown]
  - Cough [Unknown]
  - Oedema peripheral [Unknown]
  - Fatigue [Unknown]
